FAERS Safety Report 18488383 (Version 1)
Quarter: 2020Q4

REPORT INFORMATION
  Report Type: Report from Study
  Country: None (occurrence: CA)
  Receive Date: 20201110
  Receipt Date: 20201110
  Transmission Date: 20210114
  Serious: Yes (Hospitalization)
  Sender: FDA-Public Use
  Company Number: CA-ABBVIE-20K-028-3643998-00

PATIENT
  Sex: Male

DRUGS (1)
  1. HUMIRA [Suspect]
     Active Substance: ADALIMUMAB
     Indication: CROHN^S DISEASE
     Route: 058
     Dates: start: 20171107

REACTIONS (4)
  - Treatment noncompliance [Not Recovered/Not Resolved]
  - Confusional state [Unknown]
  - Intestinal cyst [Unknown]
  - Laboratory test abnormal [Not Recovered/Not Resolved]
